FAERS Safety Report 8771327 (Version 1)
Quarter: 2012Q4

REPORT INFORMATION
  Report Type: 
  Country: US (occurrence: US)
  Receive Date: 20120906
  Receipt Date: 20120906
  Transmission Date: 20130627
  Serious: Yes (Hospitalization)
  Sender: FDA-Public Use
  Company Number: US-GLAXOSMITHKLINE-A0776001A

PATIENT
  Age: 58 Year
  Sex: Male
  Weight: 106.8 kg

DRUGS (2)
  1. AVANDIA [Suspect]
     Indication: DIABETES MELLITUS
     Dosage: 4MG Twice per day
     Route: 048
     Dates: start: 2002, end: 200603
  2. REGULAR INSULIN [Concomitant]
     Dates: start: 1998

REACTIONS (3)
  - Myocardial infarction [Not Recovered/Not Resolved]
  - Cardiac failure congestive [Unknown]
  - Heart injury [Unknown]
